FAERS Safety Report 9302303 (Version 1)
Quarter: 2013Q2

REPORT INFORMATION
  Report Type: Spontaneous
  Country: GB (occurrence: GB)
  Receive Date: 20130522
  Receipt Date: 20130522
  Transmission Date: 20140414
  Serious: Yes (Other)
  Sender: FDA-Public Use
  Company Number: GB-ABBOTT-13X-167-1090449-00

PATIENT
  Sex: Male

DRUGS (1)
  1. CREON [Suspect]
     Indication: PANCREATIC INSUFFICIENCY

REACTIONS (11)
  - Drug intolerance [Unknown]
  - Diabetes mellitus [Unknown]
  - Pancreatic duct dilatation [Unknown]
  - Pancreatolithiasis [Unknown]
  - Biliary dilatation [Unknown]
  - Bile duct stone [Unknown]
  - Pancreatic atrophy [Unknown]
  - Infertility [Unknown]
  - Genital disorder male [Unknown]
  - Cystic fibrosis [Unknown]
  - Cough [Unknown]
